FAERS Safety Report 6183087-8 (Version None)
Quarter: 2009Q2

REPORT INFORMATION
  Report Type: 
  Country: None (occurrence: None)
  Receive Date: 20090507
  Receipt Date: 20090506
  Transmission Date: 20091009
  Serious: Yes (Other)
  Sender: FDA-Public Use
  Company Number: US-B.I. PHARMACEUTICALS,INC./RIDGEFIELD-2009-BP-05636BP

PATIENT
  Age: 78 Year
  Sex: Male

DRUGS (2)
  1. AGGRENOX [Suspect]
  2. PLAVIX [Suspect]
     Dosage: 75MG
     Route: 048
     Dates: end: 20090401

REACTIONS (1)
  - GASTROINTESTINAL HAEMORRHAGE [None]
